FAERS Safety Report 14457696 (Version 1)
Quarter: 2018Q1

REPORT INFORMATION
  Report Type: Spontaneous
  Country: US (occurrence: US)
  Receive Date: 20180130
  Receipt Date: 20180130
  Transmission Date: 20180509
  Serious: Yes (Hospitalization, Other)
  Sender: FDA-Public Use
  Company Number: US-BEH-2018087204

PATIENT
  Sex: Male
  Weight: 76.87 kg

DRUGS (28)
  1. GABAPENTIN. [Concomitant]
     Active Substance: GABAPENTIN
  2. OXYGEN. [Concomitant]
     Active Substance: OXYGEN
  3. MIRALAX [Concomitant]
     Active Substance: POLYETHYLENE GLYCOL 3350
  4. FUROSEMIDE. [Concomitant]
     Active Substance: FUROSEMIDE
  5. MUCINEX [Concomitant]
     Active Substance: GUAIFENESIN
  6. KLOR-CON [Concomitant]
     Active Substance: POTASSIUM CHLORIDE
  7. ZEMAIRA [Suspect]
     Active Substance: .ALPHA.1-PROTEINASE INHIBITOR HUMAN
     Indication: ALPHA-1 ANTI-TRYPSIN DEFICIENCY
     Dosage: 60 MG/KG, QW
     Route: 042
     Dates: start: 20160502
  8. IPRATROPIUM BROMIDE AND ALBUTEROL SULFATE [Concomitant]
     Active Substance: ALBUTEROL SULFATE\IPRATROPIUM BROMIDE
  9. VITAMIN D3 [Concomitant]
     Active Substance: CHOLECALCIFEROL
  10. CELEXA [Concomitant]
     Active Substance: CITALOPRAM HYDROBROMIDE
  11. ELIQUIS [Concomitant]
     Active Substance: APIXABAN
  12. IRON [Concomitant]
     Active Substance: IRON
  13. SIMVASTATIN. [Concomitant]
     Active Substance: SIMVASTATIN
  14. CARVEDILOL. [Concomitant]
     Active Substance: CARVEDILOL
  15. VITAMINS WITH MINERALS [Concomitant]
     Active Substance: MINERALS\VITAMINS
  16. SYSTANE (HYPROMELLOSE 2910 (4000 MPA.S)) [Concomitant]
     Active Substance: HYPROMELLOSE 2910 (4000 MPA.S)
  17. CALTRATE +D                        /01204201/ [Concomitant]
  18. PREDNISONE. [Concomitant]
     Active Substance: PREDNISONE
  19. LORAZEPAM. [Concomitant]
     Active Substance: LORAZEPAM
  20. PEPCID                             /00305201/ [Concomitant]
     Active Substance: ALUMINUM HYDROXIDE\MAGNESIUM CARBONATE
  21. DOCUSATE [Concomitant]
     Active Substance: DOCUSATE
  22. VITAMIN B12 [Concomitant]
     Active Substance: CYANOCOBALAMIN
  23. LOSARTAN. [Concomitant]
     Active Substance: LOSARTAN
  24. ZEMAIRA [Suspect]
     Active Substance: .ALPHA.1-PROTEINASE INHIBITOR HUMAN
     Dosage: UNK
     Route: 042
  25. PROAIR HFA [Concomitant]
     Active Substance: ALBUTEROL SULFATE
  26. TYLENOL [Concomitant]
     Active Substance: ACETAMINOPHEN
  27. NYSTATIN. [Concomitant]
     Active Substance: NYSTATIN
  28. ADVAIR HFA [Concomitant]
     Active Substance: FLUTICASONE PROPIONATE\SALMETEROL XINAFOATE

REACTIONS (2)
  - Lung infection [Unknown]
  - Staphylococcal infection [Unknown]
